FAERS Safety Report 6639521-X (Version None)
Quarter: 2010Q1

REPORT INFORMATION
  Report Type: 
  Country: None (occurrence: None)
  Receive Date: 20100318
  Receipt Date: 20100303
  Transmission Date: 20100710
  Serious: Yes (Hospitalization)
  Sender: FDA-Public Use
  Company Number: US-ELI_LILLY_AND_COMPANY-US201003002012

PATIENT
  Sex: Female

DRUGS (12)
  1. FORTEO [Suspect]
     Indication: FRACTURE
     Dosage: 20 UG, DAILY (1/D)
     Route: 065
     Dates: start: 20090501, end: 20090101
  2. PREDNISONE [Concomitant]
     Dosage: 10 MG, DAILY (1/D)
     Route: 065
  3. PLAQUENIL [Concomitant]
     Dosage: 400 MG, DAILY (1/D)
     Route: 065
  4. ZOLOFT [Concomitant]
     Dosage: 100 MG, DAILY (1/D)
     Route: 065
  5. VICODIN [Concomitant]
     Dosage: 750 MG, AS NEEDED
     Route: 065
  6. CRESTOR [Concomitant]
     Dosage: 20 MG, DAILY (1/D)
     Route: 065
  7. TOPRAL [Concomitant]
     Dosage: 25 MG, DAILY (1/D)
     Route: 065
  8. CALCIUM W/VITAMIN D NOS [Concomitant]
     Dosage: UNK, DAILY (1/D)
     Route: 065
  9. KLONOPIN [Concomitant]
     Dosage: 0.5 MG, OTHER
     Route: 065
  10. XANAX [Concomitant]
     Dosage: 1 MG, AS NEEDED
     Route: 065
  11. MULTI-VITAMIN [Concomitant]
     Dosage: UNK, DAILY (1/D)
     Route: 065
  12. IRON [Concomitant]
     Dosage: UNK, DAILY (1/D)
     Route: 065

REACTIONS (3)
  - GAIT DISTURBANCE [None]
  - JOINT INJURY [None]
  - TREMOR [None]
